FAERS Safety Report 13008997 (Version 1)
Quarter: 2016Q4

REPORT INFORMATION
  Report Type: Spontaneous
  Country: FR (occurrence: FR)
  Receive Date: 20161208
  Receipt Date: 20161208
  Transmission Date: 20170207
  Serious: Yes (Death, Other)
  Sender: FDA-Public Use
  Company Number: FR-PFIZER INC-2016564996

PATIENT
  Age: 62 Year
  Sex: Male

DRUGS (8)
  1. SILODYX [Concomitant]
     Active Substance: SILODOSIN
     Dosage: UNK
  2. ALPRAZOLAM. [Concomitant]
     Active Substance: ALPRAZOLAM
     Dosage: UNK
  3. PAROXETINE HYDROCHLORIDE. [Suspect]
     Active Substance: PAROXETINE HYDROCHLORIDE
     Dosage: 20 MG, 1X/DAY
     Route: 048
  4. TAHOR [Concomitant]
     Active Substance: ATORVASTATIN CALCIUM
     Dosage: UNK
  5. CORTANCYL [Suspect]
     Active Substance: PREDNISONE
     Dosage: 40 MG, 1X/DAY
     Route: 048
  6. FRAGMINE [Suspect]
     Active Substance: DALTEPARIN SODIUM
     Dosage: 1 INJECTION, 1X/DAY
     Route: 058
  7. PANTOPRAZOLE [Concomitant]
     Active Substance: PANTOPRAZOLE SODIUM
     Dosage: UNK
  8. PLAVIX [Suspect]
     Active Substance: CLOPIDOGREL BISULFATE
     Dosage: UNK
     Route: 048
     Dates: end: 20151227

REACTIONS (4)
  - Rectal ulcer [Unknown]
  - Rectal haemorrhage [Fatal]
  - Rectal adenoma [Unknown]
  - Anaemia [Fatal]

NARRATIVE: CASE EVENT DATE: 20151227
